FAERS Safety Report 6963502-X (Version None)
Quarter: 2010Q3

REPORT INFORMATION
  Report Type: 
  Country: None (occurrence: None)
  Receive Date: 20100902
  Receipt Date: 20100825
  Transmission Date: 20110219
  Serious: Yes (Hospitalization)
  Sender: FDA-Public Use
  Company Number: US-US-EMD SERONO, INC.-7015882

PATIENT
  Sex: Female

DRUGS (3)
  1. REBIF [Suspect]
     Indication: MULTIPLE SCLEROSIS
     Route: 058
     Dates: start: 20030307
  2. PROVIGIL [Concomitant]
     Indication: FATIGUE
  3. PROZAC [Concomitant]
     Indication: HEADACHE

REACTIONS (8)
  - CERVICAL SPINAL STENOSIS [None]
  - CHILLS [None]
  - FEELING COLD [None]
  - HYPOAESTHESIA [None]
  - MIGRAINE [None]
  - PAIN [None]
  - VERTEBRAL ARTERY STENOSIS [None]
  - VERTIGO [None]
